FAERS Safety Report 16401659 (Version 1)
Quarter: 2019Q2

REPORT INFORMATION
  Report Type: Spontaneous
  Country: US (occurrence: US)
  Receive Date: 20190606
  Receipt Date: 20190606
  Transmission Date: 20190711
  Serious: No
  Sender: FDA-Public Use
  Company Number: US-PTC THERAPEUTICS, INC.-US-2019PTC000818

PATIENT
  Sex: Male

DRUGS (3)
  1. EMFLAZA [Suspect]
     Active Substance: DEFLAZACORT
     Dosage: 45 MG, ON SATURDAY AND SUNDAY
     Route: 048
     Dates: start: 201904
  2. EMFLAZA [Suspect]
     Active Substance: DEFLAZACORT
     Indication: DUCHENNE MUSCULAR DYSTROPHY
     Dosage: 90 MG, QD
     Route: 048
     Dates: start: 20180813
  3. EMFLAZA [Suspect]
     Active Substance: DEFLAZACORT
     Dosage: 90 MG, ON SATURDAT AND SUNDAY
     Route: 048
     Dates: start: 20181205

REACTIONS (4)
  - Cardiac disorder [Unknown]
  - Off label use [Unknown]
  - Peripheral swelling [Unknown]
  - Weight increased [Unknown]
